FAERS Safety Report 4270727-3 (Version None)
Quarter: 2004Q1

REPORT INFORMATION
  Report Type: 
  Country: None (occurrence: None)
  Receive Date: 20040113
  Receipt Date: 20031231
  Transmission Date: 20041129
  Serious: Yes (Hospitalization, Other)
  Sender: FDA-Public Use
  Company Number: 2003116749

PATIENT
  Age: 46 Year
  Sex: Female

DRUGS (10)
  1. GEODON [Suspect]
     Indication: MENTAL IMPAIRMENT
     Dosage: ORAL
     Route: 048
     Dates: start: 20030423, end: 20031020
  2. GEODON [Suspect]
     Indication: MOOD SWINGS
     Dosage: ORAL
     Route: 048
     Dates: start: 20030423, end: 20031020
  3. ZOLOFT [Suspect]
     Indication: ANXIETY
     Dosage: ORAL
     Route: 048
     Dates: start: 20030509, end: 20031215
  4. ZOLOFT [Suspect]
     Indication: DEPRESSION
     Dosage: ORAL
     Route: 048
     Dates: start: 20030509, end: 20031215
  5. CLONAZEPAM [Concomitant]
  6. EZETIMIBE (EZETIMIBE) [Concomitant]
  7. INSULIN [Concomitant]
  8. ISOPHANE INSULIN [Concomitant]
  9. CAPTOPRIL [Concomitant]
  10. PANTOPRAZOLE (PANTOPRAZOLE) [Concomitant]

REACTIONS (9)
  - ADRENAL ADENOMA [None]
  - DEPRESSION [None]
  - DRUG INEFFECTIVE [None]
  - HEADACHE [None]
  - HEPATIC STEATOSIS [None]
  - MEDICATION ERROR [None]
  - PANCREATITIS [None]
  - SUICIDAL IDEATION [None]
  - TREATMENT NONCOMPLIANCE [None]
